FAERS Safety Report 20085204 (Version 12)
Quarter: 2025Q4

REPORT INFORMATION
  Report Type: Report from Study
  Country: EU (occurrence: EU)
  Receive Date: 20211118
  Receipt Date: 20251111
  Transmission Date: 20260117
  Serious: Yes (Life-Threatening, Hospitalization)
  Sender: SANOFI AVENTIS
  Company Number: EU-SA-2018SA246533

PATIENT
  Age: 41 Year
  Sex: Female
  Weight: 54 kg

DRUGS (23)
  1. ALEMTUZUMAB [Suspect]
     Active Substance: ALEMTUZUMAB
     Indication: Relapsing multiple sclerosis
     Dosage: 12 MG, QD
     Route: 041
     Dates: start: 20161024, end: 20161028
  2. ALEMTUZUMAB [Suspect]
     Active Substance: ALEMTUZUMAB
     Dosage: 12 MG, QD
     Route: 041
     Dates: start: 20180814, end: 20180816
  3. CIPHIN [CIPROFLOXACIN HYDROCHLORIDE] [Concomitant]
     Dosage: UNK
     Route: 065
  4. DUPHALAC [Concomitant]
     Active Substance: LACTULOSE
     Dosage: UNK
     Route: 065
  5. ZENTEL [Concomitant]
     Active Substance: ALBENDAZOLE
     Dosage: 10 ML, BID
     Route: 048
  6. PANTOPRAZOLE SODIUM [Concomitant]
     Active Substance: PANTOPRAZOLE SODIUM
     Dosage: UNK
     Route: 065
  7. LOTEMAX [Concomitant]
     Active Substance: LOTEPREDNOL ETABONATE
     Dosage: UNK, Q4H
     Route: 065
  8. UNITROPIC [Concomitant]
     Dosage: 1 %, Q5H
     Route: 065
  9. BRIMONIDINE TARTRATE [Concomitant]
     Active Substance: BRIMONIDINE TARTRATE
     Dosage: 2 MG/ML, BID
     Route: 065
  10. OPHTHALMO-HYDROCORTISON [Concomitant]
     Dosage: UNK
     Route: 065
  11. UNIDEXA [DEXAMETHASONE] [Concomitant]
     Dosage: 0.1 %, Q2H
     Route: 065
  12. NADROPARIN CALCIUM [Concomitant]
     Active Substance: NADROPARIN CALCIUM
     Dosage: 0.5 ML, Q12H
     Route: 065
  13. NADROPARIN CALCIUM [Concomitant]
     Active Substance: NADROPARIN CALCIUM
     Dosage: 0.6 ML, QD
     Route: 065
  14. ESCITALOPRAM [Concomitant]
     Active Substance: ESCITALOPRAM OXALATE
     Dosage: UNK
     Route: 048
     Dates: start: 201304
  15. GINGO BILOBA [Concomitant]
     Indication: Multiple sclerosis
     Dosage: UNK
     Route: 048
     Dates: start: 201609
  16. TIZANIDINE HYDROCHLORIDE [Concomitant]
     Active Substance: TIZANIDINE HYDROCHLORIDE
     Indication: Multiple sclerosis
     Dosage: UNK
     Route: 048
     Dates: start: 20180509
  17. LOTEPREDNOL ETABONATE [Concomitant]
     Active Substance: LOTEPREDNOL ETABONATE
     Indication: Prophylaxis
     Dosage: DROP
     Route: 065
     Dates: start: 201809
  18. PANTOPRAZOLE [Concomitant]
     Active Substance: PANTOPRAZOLE
     Indication: Prophylaxis
     Dosage: UNK
     Route: 048
     Dates: start: 201901
  19. CHOLECALCIFEROL [Concomitant]
     Active Substance: CHOLECALCIFEROL
     Dosage: DROP
     Route: 048
     Dates: start: 201309
  20. UNICLOPHEN [ASCORBIC ACID] [Concomitant]
     Dosage: 0.1 %, Q5H
     Route: 065
  21. ALBENDAZOLE [Concomitant]
     Active Substance: ALBENDAZOLE
     Dosage: UNK
     Route: 065
  22. CEFUROXIME SODIUM [Concomitant]
     Active Substance: CEFUROXIME SODIUM
     Dosage: UNK
     Route: 065
  23. TIZANIDINE [Concomitant]
     Active Substance: TIZANIDINE
     Dosage: UNK
     Route: 065

REACTIONS (32)
  - Vena cava thrombosis [Recovered/Resolved]
  - Autoimmune uveitis [Recovered/Resolved]
  - Graves^ disease [Recovered/Resolved]
  - Iridocyclitis [Recovered/Resolved with Sequelae]
  - Echinococciasis [Not Recovered/Not Resolved]
  - Urosepsis [Recovered/Resolved]
  - Leukopenia [Recovered/Resolved]
  - Pyrexia [Recovered/Resolved]
  - Echinococciasis [Not Recovered/Not Resolved]
  - Iridocyclitis [Recovered/Resolved]
  - Iridocyclitis [Recovered/Resolved]
  - Tonsillitis [Recovered/Resolved]
  - Hepatic echinococciasis [Recovering/Resolving]
  - Autoimmune thyroiditis [Not Recovered/Not Resolved]
  - Inferior vena cava dilatation [Recovering/Resolving]
  - Hypochromic anaemia [Recovered/Resolved]
  - Catheter site phlebitis [Recovered/Resolved]
  - Haemorrhagic ovarian cyst [Recovered/Resolved]
  - Vestibular disorder [Recovered/Resolved]
  - Intermenstrual bleeding [Recovered/Resolved]
  - Hypercreatinaemia [Not Recovered/Not Resolved]
  - Dyspepsia [Recovered/Resolved]
  - Bacteriuria [Recovered/Resolved]
  - Fungal cystitis [Recovered/Resolved]
  - Laryngopharyngitis [Recovered/Resolved]
  - Aspartate aminotransferase increased [Recovered/Resolved]
  - Rhinitis [Recovered/Resolved]
  - Aspartate aminotransferase increased [Recovered/Resolved]
  - Body temperature increased [Recovered/Resolved]
  - Urinary tract infection [Recovered/Resolved]
  - COVID-19 [Recovered/Resolved]
  - Acute sinusitis [Recovered/Resolved]

NARRATIVE: CASE EVENT DATE: 20180814
